FAERS Safety Report 6937732-7 (Version None)
Quarter: 2010Q3

REPORT INFORMATION
  Report Type: 
  Country: None (occurrence: None)
  Receive Date: 20100820
  Receipt Date: 20100820
  Transmission Date: 20110219
  Serious: Yes (Hospitalization)
  Sender: FDA-Public Use
  Company Number: None

PATIENT
  Age: 78 Year
  Sex: Female
  Weight: 73.7 kg

DRUGS (5)
  1. IPILIMUMAB BRISTOL-MYERS SQUIBB + MEDAREX [Suspect]
     Indication: MALIGNANT MELANOMA
     Dates: start: 20100701, end: 20100701
  2. DIOVAN [Concomitant]
  3. ZOCOR [Concomitant]
  4. INDERAL [Concomitant]
  5. HYDROCHLOROTHIAZIDE [Concomitant]

REACTIONS (3)
  - HYPONATRAEMIA [None]
  - HYPOPHYSITIS [None]
  - HYPOTHYROIDISM [None]
